FAERS Safety Report 5252984-X (Version None)
Quarter: 2007Q1

REPORT INFORMATION
  Report Type: 
  Country: None (occurrence: None)
  Receive Date: 20070301
  Receipt Date: 20070219
  Transmission Date: 20070707
  Serious: Yes (Hospitalization)
  Sender: FDA-Public Use
  Company Number: FRWYE636819MAY06

PATIENT
  Age: 44 Year
  Sex: Female

DRUGS (3)
  1. ENBREL [Suspect]
     Indication: RHEUMATOID ARTHRITIS
     Route: 058
     Dates: start: 20030615, end: 20060401
  2. ENBREL [Suspect]
     Route: 058
     Dates: start: 20060401
  3. ENBREL [Suspect]
     Dosage: UNKNOWN
     Route: 058
     Dates: end: 20060901

REACTIONS (4)
  - GLAUCOMA [None]
  - IRIDOCYCLITIS [None]
  - SCLERITIS [None]
  - VISUAL ACUITY REDUCED [None]
